FAERS Safety Report 5027662-2 (Version None)
Quarter: 2006Q2

REPORT INFORMATION
  Report Type: 
  Country: None (occurrence: None)
  Receive Date: 20060614
  Receipt Date: 20060614
  Transmission Date: 20061013
  Serious: Yes (Other)
  Sender: FDA-Public Use
  Company Number: None

PATIENT
  Age: 32 Year
  Sex: Male

DRUGS (1)
  1. BUPROPRION HCL [Suspect]
     Dosage: 300 MG DAILY

REACTIONS (2)
  - BACK PAIN [None]
  - CONVULSION [None]
